FAERS Safety Report 7415944-6 (Version None)
Quarter: 2011Q2

REPORT INFORMATION
  Report Type: 
  Country: None (occurrence: None)
  Receive Date: 20110414
  Receipt Date: 20110404
  Transmission Date: 20111010
  Serious: Yes (Hospitalization, Other)
  Sender: FDA-Public Use
  Company Number: PHHY2011JP29280

PATIENT
  Age: 62 Year
  Sex: Female

DRUGS (2)
  1. METHOTREXATE [Suspect]
     Indication: RHEUMATOID ARTHRITIS
     Dosage: 4 MG/ WEEK
  2. PREDNISOLONE [Suspect]
     Indication: RHEUMATOID ARTHRITIS

REACTIONS (17)
  - PLEURAL EFFUSION [None]
  - LYMPHOPROLIFERATIVE DISORDER [None]
  - DYSPNOEA EXERTIONAL [None]
  - SPLEEN PALPABLE [None]
  - FLUID RETENTION [None]
  - ABDOMINAL DISTENSION [None]
  - ASCITES [None]
  - BLINDNESS [None]
  - RENAL FAILURE [None]
  - VERTIGO [None]
  - HEADACHE [None]
  - LYMPHOPLASMACYTOID LYMPHOMA/IMMUNOCYTOMA [None]
  - LIVER TENDERNESS [None]
  - ASTHENIA [None]
  - CRYOGLOBULINAEMIA [None]
  - POLYURIA [None]
  - HEPATOSPLENOMEGALY [None]
